FAERS Safety Report 9356407 (Version 3)
Quarter: 2014Q1

REPORT INFORMATION
  Report Type: Spontaneous
  Country: US (occurrence: US)
  Receive Date: 20130619
  Receipt Date: 20140321
  Transmission Date: 20141002
  Serious: Yes (Hospitalization)
  Sender: FDA-Public Use
  Company Number: US-B.I. PHARMACEUTICALS,INC./RIDGEFIELD-2013-BI-16854BP

PATIENT
  Sex: Male
  Weight: 81.65 kg

DRUGS (11)
  1. PRADAXA [Suspect]
     Indication: ATRIAL FIBRILLATION
     Dosage: 300 MG
     Route: 048
     Dates: start: 20120320, end: 20120327
  2. NITROSTAT [Concomitant]
     Route: 065
     Dates: start: 2011
  3. ASPIRIN [Concomitant]
     Route: 065
  4. LOSARTAN [Concomitant]
     Route: 065
  5. METOPROLOL [Concomitant]
     Route: 065
     Dates: start: 2011
  6. SIMVASTATIN [Concomitant]
     Route: 065
  7. RANITIDINE [Concomitant]
     Route: 065
     Dates: start: 2009
  8. GLYBURIDE [Concomitant]
     Route: 065
     Dates: start: 2010
  9. FISH OIL [Concomitant]
     Route: 065
  10. MULTIVITAMIN [Concomitant]
     Route: 065
  11. VITAMIN D [Concomitant]
     Route: 065

REACTIONS (3)
  - Upper gastrointestinal haemorrhage [Recovered/Resolved]
  - Acute myocardial infarction [Unknown]
  - Anaemia [Unknown]
